FAERS Safety Report 19888285 (Version 1)
Quarter: 2021Q3

REPORT INFORMATION
  Report Type: Report from Study
  Country: FR (occurrence: FR)
  Receive Date: 20210927
  Receipt Date: 20210927
  Transmission Date: 20211014
  Serious: Yes (Hospitalization, Other)
  Sender: FDA-Public Use
  Company Number: NVSC2021FR217064

PATIENT
  Sex: Male
  Weight: 75 kg

DRUGS (2)
  1. ELTROMBOPAG [Suspect]
     Active Substance: ELTROMBOPAG
     Indication: IMMUNE THROMBOCYTOPENIA
     Dosage: 50 MG, QD
     Route: 048
     Dates: start: 20200206
  2. ELTROMBOPAG [Suspect]
     Active Substance: ELTROMBOPAG
     Dosage: 50 MG, QD
     Route: 048
     Dates: start: 20200206, end: 20200329

REACTIONS (10)
  - Ischaemic stroke [Recovering/Resolving]
  - Gait disturbance [Unknown]
  - Balance disorder [Unknown]
  - Malaise [Unknown]
  - Speech disorder [Unknown]
  - Cerebellar syndrome [Unknown]
  - Confusional state [Unknown]
  - Disorientation [Unknown]
  - Nausea [Unknown]
  - Decreased appetite [Unknown]

NARRATIVE: CASE EVENT DATE: 20210624
